FAERS Safety Report 4755430-5 (Version None)
Quarter: 2005Q3

REPORT INFORMATION
  Report Type: 
  Country: None (occurrence: None)
  Receive Date: 20050826
  Receipt Date: 20050826
  Transmission Date: 20060218
  Serious: Yes (Death)
  Sender: FDA-Public Use
  Company Number: None

PATIENT
  Age: 66 Year
  Sex: Female
  Weight: 85.7298 kg

DRUGS (19)
  1. DIGOXIN [Suspect]
     Indication: ATRIAL FIBRILLATION
     Dosage: 0.5 MG TWO DOSES PO
     Route: 048
     Dates: start: 20050422, end: 20050422
  2. ALBUTEROL [Concomitant]
  3. AMIODARONE [Concomitant]
  4. ASPIRIN [Concomitant]
  5. BISACODYL [Concomitant]
  6. DIGOXIN [Concomitant]
  7. DOBUTAMINE HCL [Concomitant]
  8. FAMOTIDINE [Concomitant]
  9. GATIFLOXACIN [Concomitant]
  10. DEXTROSE [Concomitant]
  11. HEPARIN [Concomitant]
  12. INSULIN - HUMAN [Concomitant]
  13. IPRATROPIUM BROMIDE [Concomitant]
  14. PRATROPIUM [Concomitant]
  15. LACTULOSE [Concomitant]
  16. LEVOTHYROXINE [Concomitant]
  17. MIDAZOLAM HCL [Concomitant]
  18. NOREPINEPHRINE [Concomitant]
  19. POTASSIUM CHLORIDE [Concomitant]

REACTIONS (5)
  - ATRIAL FIBRILLATION [None]
  - BLOOD POTASSIUM DECREASED [None]
  - CARDIO-RESPIRATORY ARREST [None]
  - THERAPEUTIC AGENT TOXICITY [None]
  - VENTRICULAR FIBRILLATION [None]
